FAERS Safety Report 19887832 (Version 1)
Quarter: 2021Q3

REPORT INFORMATION
  Report Type: Report from Study
  Country: IT (occurrence: IT)
  Receive Date: 20210927
  Receipt Date: 20210927
  Transmission Date: 20211014
  Serious: Yes (Other)
  Sender: FDA-Public Use
  Company Number: IT-PFIZER INC-202101221117

PATIENT
  Age: 50 Year
  Sex: Male

DRUGS (3)
  1. TARGIN [Suspect]
     Active Substance: NALOXONE HYDROCHLORIDE\OXYCODONE HYDROCHLORIDE
     Indication: NECK PAIN
     Dosage: 20 MG FREQ:{TOTAL};
     Route: 048
  2. LYRICA [Suspect]
     Active Substance: PREGABALIN
     Indication: NECK PAIN
     Dosage: 75 MG FREQ:{TOTAL};
     Route: 048
  3. LEXOTAN [Suspect]
     Active Substance: BROMAZEPAM
     Dosage: UNK

REACTIONS (2)
  - Drug abuse [Recovered/Resolved]
  - Hypotension [Recovered/Resolved]

NARRATIVE: CASE EVENT DATE: 20210715
